FAERS Safety Report 8172916-4 (Version None)
Quarter: 2012Q1

REPORT INFORMATION
  Report Type: 
  Country: None (occurrence: None)
  Receive Date: 20120223
  Receipt Date: 20120211
  Transmission Date: 20120608
  Serious: Yes (Hospitalization)
  Sender: FDA-Public Use
  Company Number: 2012AP000359

PATIENT
  Age: 40 Year
  Sex: Male
  Weight: 107 kg

DRUGS (15)
  1. MIDAZOLAM [Concomitant]
  2. CARISOPRODOL [Concomitant]
  3. HYDROCODONE BITARTRATE [Concomitant]
  4. LIDOCAINE [Concomitant]
  5. KETAMINE HYDROCHLORIDE [Concomitant]
  6. VECURONIUM BROMIDE [Concomitant]
  7. MELOXICAM [Suspect]
     Indication: PRODUCT USED FOR UNKNOWN INDICATION
  8. DEXMEDETOMODINE HYDROCHLORIDE [Suspect]
     Indication: GENERAL ANAESTHESIA
     Dosage: IV
     Route: 042
  9. PROPOFOL [Concomitant]
  10. ISOFLURANE [Concomitant]
  11. TAMSULOSIN HCL [Suspect]
     Indication: PRODUCT USED FOR UNKNOWN INDICATION
  12. LOSARTAN POTASSIUM [Suspect]
     Indication: PRODUCT USED FOR UNKNOWN INDICATION
  13. GABAPENTIN [Concomitant]
  14. ACETAMINOPHEN [Concomitant]
  15. SUFENTANIL CITRATE [Concomitant]

REACTIONS (5)
  - HYPOTENSION [None]
  - TACHYCARDIA [None]
  - BLOOD SODIUM INCREASED [None]
  - SPECIFIC GRAVITY URINE DECREASED [None]
  - POLYURIA [None]
